FAERS Safety Report 23584183 (Version 1)
Quarter: 2024Q1

REPORT INFORMATION
  Report Type: Spontaneous
  Country: US (occurrence: US)
  Receive Date: 20240301
  Receipt Date: 20240301
  Transmission Date: 20240410
  Serious: No
  Sender: FDA-Public Use
  Company Number: US-ELI_LILLY_AND_COMPANY-US202402017103

PATIENT
  Age: 49 Year

DRUGS (15)
  1. MOUNJARO [Suspect]
     Active Substance: TIRZEPATIDE
     Indication: Glycosylated haemoglobin abnormal
     Dosage: 2.5 MG, UNKNOWN
     Route: 065
     Dates: start: 202308
  2. MOUNJARO [Suspect]
     Active Substance: TIRZEPATIDE
     Indication: Glycosylated haemoglobin abnormal
     Dosage: 2.5 MG, UNKNOWN
     Route: 065
     Dates: start: 202308
  3. MOUNJARO [Suspect]
     Active Substance: TIRZEPATIDE
     Indication: Glycosylated haemoglobin abnormal
     Dosage: 2.5 MG, UNKNOWN
     Route: 065
     Dates: start: 202308
  4. MOUNJARO [Suspect]
     Active Substance: TIRZEPATIDE
     Indication: Glycosylated haemoglobin abnormal
     Dosage: 2.5 MG, UNKNOWN
     Route: 065
     Dates: start: 202308
  5. MOUNJARO [Suspect]
     Active Substance: TIRZEPATIDE
     Indication: Glycosylated haemoglobin abnormal
     Dosage: 2.5 MG, UNKNOWN
     Route: 065
     Dates: start: 202308
  6. MOUNJARO [Suspect]
     Active Substance: TIRZEPATIDE
     Indication: Diabetes mellitus
     Dosage: UNK UNK, UNKNOWN
     Route: 065
  7. MOUNJARO [Suspect]
     Active Substance: TIRZEPATIDE
     Indication: Diabetes mellitus
     Dosage: UNK UNK, UNKNOWN
     Route: 065
  8. MOUNJARO [Suspect]
     Active Substance: TIRZEPATIDE
     Indication: Diabetes mellitus
     Dosage: UNK UNK, UNKNOWN
     Route: 065
  9. MOUNJARO [Suspect]
     Active Substance: TIRZEPATIDE
     Indication: Diabetes mellitus
     Dosage: UNK UNK, UNKNOWN
     Route: 065
  10. MOUNJARO [Suspect]
     Active Substance: TIRZEPATIDE
     Indication: Diabetes mellitus
     Dosage: UNK UNK, UNKNOWN
     Route: 065
  11. MOUNJARO [Suspect]
     Active Substance: TIRZEPATIDE
     Indication: Insulin C-peptide abnormal
     Dosage: 12.5 MG, UNKNOWN
     Route: 065
     Dates: start: 202308
  12. MOUNJARO [Suspect]
     Active Substance: TIRZEPATIDE
     Indication: Insulin C-peptide abnormal
     Dosage: 12.5 MG, UNKNOWN
     Route: 065
     Dates: start: 202308
  13. MOUNJARO [Suspect]
     Active Substance: TIRZEPATIDE
     Indication: Insulin C-peptide abnormal
     Dosage: 12.5 MG, UNKNOWN
     Route: 065
     Dates: start: 202308
  14. MOUNJARO [Suspect]
     Active Substance: TIRZEPATIDE
     Indication: Insulin C-peptide abnormal
     Dosage: 12.5 MG, UNKNOWN
     Route: 065
     Dates: start: 202308
  15. MOUNJARO [Suspect]
     Active Substance: TIRZEPATIDE
     Indication: Insulin C-peptide abnormal
     Dosage: 12.5 MG, UNKNOWN
     Route: 065
     Dates: start: 202308

REACTIONS (2)
  - Blood glucose increased [Unknown]
  - Malaise [Unknown]

NARRATIVE: CASE EVENT DATE: 20240226
